FAERS Safety Report 8058257-4 (Version None)
Quarter: 2012Q1

REPORT INFORMATION
  Report Type: 
  Country: None (occurrence: None)
  Receive Date: 20120120
  Receipt Date: 20120116
  Transmission Date: 20120608
  Serious: Yes (Death, Hospitalization, Other)
  Sender: FDA-Public Use
  Company Number: US-AMGEN-USASP2011039850

PATIENT
  Age: 89 Year
  Sex: Female
  Weight: 68.027 kg

DRUGS (1)
  1. NPLATE [Suspect]
     Indication: IDIOPATHIC THROMBOCYTOPENIC PURPURA
     Dosage: 9 MUG/KG, QWK
     Route: 058
     Dates: start: 20091204, end: 20110304

REACTIONS (3)
  - DEATH [None]
  - FATIGUE [None]
  - THERAPEUTIC RESPONSE DECREASED [None]
